FAERS Safety Report 25237025 (Version 4)
Quarter: 2025Q4

REPORT INFORMATION
  Report Type: Spontaneous
  Country: US (occurrence: US)
  Receive Date: 20250424
  Receipt Date: 20251017
  Transmission Date: 20260117
  Serious: No
  Sender: BRISTOL-MYERS SQUIBB COMPANY
  Company Number: US-BRISTOL-MYERS SQUIBB COMPANY-2025-060800

PATIENT
  Age: 41 Year
  Sex: Female

DRUGS (2)
  1. REVLIMID [Suspect]
     Active Substance: LENALIDOMIDE
     Indication: Follicular lymphoma
  2. REVLIMID [Suspect]
     Active Substance: LENALIDOMIDE

REACTIONS (11)
  - Staphylococcal infection [Unknown]
  - Nausea [Unknown]
  - Rash [Unknown]
  - Product prescribing issue [Unknown]
  - Therapy interrupted [Unknown]
  - Fatigue [Unknown]
  - Sinusitis [Unknown]
  - Cellulitis [Unknown]
  - Chest pain [Unknown]
  - Hot flush [Unknown]
  - Hyperhidrosis [Unknown]
